FAERS Safety Report 17157275 (Version 1)
Quarter: 2019Q4

REPORT INFORMATION
  Report Type: Spontaneous
  Country: GB (occurrence: GB)
  Receive Date: 20191216
  Receipt Date: 20191216
  Transmission Date: 20200122
  Serious: Yes (Life-Threatening, Hospitalization, Other)
  Sender: FDA-Public Use
  Company Number: GB-ACCORD-165008

PATIENT
  Age: 72 Year
  Sex: Female

DRUGS (9)
  1. FOLINIC ACID [Suspect]
     Active Substance: LEUCOVORIN
     Indication: PANCREATIC CARCINOMA
     Dosage: CYCLES.
     Route: 051
  2. MORPHINE [Concomitant]
     Active Substance: MORPHINE
  3. OXALIPLATIN. [Suspect]
     Active Substance: OXALIPLATIN
     Indication: PANCREATIC CARCINOMA
     Dosage: CYCLES
     Route: 051
  4. TAZOCIN [Concomitant]
     Active Substance: PIPERACILLIN SODIUM\TAZOBACTAM SODIUM
  5. LANSOPRAZOLE. [Concomitant]
     Active Substance: LANSOPRAZOLE
  6. FLUOROURACIL. [Suspect]
     Active Substance: FLUOROURACIL
     Indication: PANCREATIC CARCINOMA
     Dosage: CYCLES.
     Route: 051
  7. IRINOTECAN [Suspect]
     Active Substance: IRINOTECAN
     Indication: PANCREATIC CARCINOMA
     Dosage: CYCLES.
     Route: 051
  8. PARACETAMOL [Concomitant]
     Active Substance: ACETAMINOPHEN
  9. FILGRASTIM [Concomitant]
     Active Substance: FILGRASTIM

REACTIONS (5)
  - Coagulopathy [Recovered/Resolved]
  - Neutropenia [Recovered/Resolved]
  - Hepatotoxicity [Recovering/Resolving]
  - Mucosal inflammation [Recovering/Resolving]
  - Off label use [Unknown]
